FAERS Safety Report 4740367-8 (Version None)
Quarter: 2005Q3

REPORT INFORMATION
  Report Type: 
  Country: None (occurrence: None)
  Receive Date: 20050803
  Receipt Date: 20050318
  Transmission Date: 20060218
  Serious: Yes (Hospitalization)
  Sender: FDA-Public Use
  Company Number: 2005-03-1310

PATIENT
  Sex: Female

DRUGS (12)
  1. INTRON A [Suspect]
     Indication: MALIGNANT MELANOMA
     Dosage: INTRAVENOUS
     Route: 042
     Dates: end: 20050301
  2. PERCOCET [Suspect]
  3. VICODIN ES [Suspect]
  4. RESTORIL [Concomitant]
  5. TRAZODONE [Concomitant]
  6. POTASSIUM SUPPLEMENT (NOS) [Concomitant]
  7. LASIX [Concomitant]
  8. PHRENILIN [Concomitant]
  9. LOMOTIL [Concomitant]
  10. ZANTAC [Concomitant]
  11. IBUPROFEN [Concomitant]
  12. MULTI-VITAMINS [Concomitant]

REACTIONS (4)
  - ABDOMINAL PAIN [None]
  - CONSTIPATION [None]
  - HEADACHE [None]
  - PAIN [None]
